FAERS Safety Report 6976430-0 (Version None)
Quarter: 2010Q3

REPORT INFORMATION
  Report Type: 
  Country: None (occurrence: None)
  Receive Date: 20100910
  Receipt Date: 20090516
  Transmission Date: 20110219
  Serious: No
  Sender: FDA-Public Use
  Company Number: US-WYE-H09119709

PATIENT
  Sex: Male
  Weight: 93.07 kg

DRUGS (6)
  1. PRISTIQ [Suspect]
     Indication: ANXIETY
     Route: 048
     Dates: start: 20090404, end: 20090424
  2. PRISTIQ [Suspect]
     Indication: PANIC DISORDER
  3. ACTONEL [Concomitant]
  4. LEVOXYL [Concomitant]
  5. TENORMIN [Concomitant]
  6. CRESTOR [Concomitant]

REACTIONS (1)
  - DRUG INEFFECTIVE FOR UNAPPROVED INDICATION [None]
